FAERS Safety Report 9818959 (Version 1)
Quarter: 2014Q1

REPORT INFORMATION
  Report Type: Spontaneous
  Country: US (occurrence: US)
  Receive Date: 20140115
  Receipt Date: 20140115
  Transmission Date: 20141002
  Serious: Yes (Other)
  Sender: FDA-Public Use
  Company Number: US-AMGEN-USASP2014001567

PATIENT
  Age: 85 Year
  Sex: Female

DRUGS (4)
  1. PROLIA [Suspect]
     Indication: OSTEOPOROSIS POSTMENOPAUSAL
     Dosage: UNK
     Route: 065
     Dates: start: 201301
  2. SIMVASTATIN [Concomitant]
     Indication: CEREBROVASCULAR ACCIDENT
  3. PLAVIX [Concomitant]
     Indication: CEREBROVASCULAR ACCIDENT
  4. ASPIRIN [Concomitant]
     Indication: CEREBROVASCULAR ACCIDENT

REACTIONS (11)
  - Neoplasm malignant [Unknown]
  - Pain [Unknown]
  - Skin disorder [Unknown]
  - Oral disorder [Unknown]
  - Toothache [Unknown]
  - Arthritis [Unknown]
  - Weight decreased [Unknown]
  - Bone disorder [Unknown]
  - Bone pain [Unknown]
  - Erythema [Unknown]
  - Mobility decreased [Unknown]
